FAERS Safety Report 12204327 (Version 1)
Quarter: 2016Q1

REPORT INFORMATION
  Report Type: Spontaneous
  Country: JP (occurrence: JP)
  Receive Date: 20160323
  Receipt Date: 20160323
  Transmission Date: 20160526
  Serious: Yes (Other)
  Sender: FDA-Public Use
  Company Number: JP-PFIZER INC-2016162329

PATIENT
  Age: 87 Year
  Sex: Female
  Weight: 50 kg

DRUGS (11)
  1. FUNGUARD [Concomitant]
     Active Substance: MICAFUNGIN SODIUM
     Indication: SPONDYLITIS
     Dosage: 100 MG, DAILY
     Dates: start: 20151102, end: 20151126
  2. ASACOL [Concomitant]
     Active Substance: MESALAMINE
  3. MAGMITT [Concomitant]
     Active Substance: MAGNESIUM OXIDE
  4. MOHRUS [Concomitant]
     Active Substance: KETOPROFEN
     Route: 062
  5. ZYVOX [Suspect]
     Active Substance: LINEZOLID
     Indication: SPONDYLITIS
     Dosage: 600 MG, 2X/DAY
     Route: 041
     Dates: start: 20151109, end: 20151113
  6. URITOS [Concomitant]
     Active Substance: IMIDAFENACIN
     Route: 048
  7. SENNOSIDE A+B [Concomitant]
     Active Substance: SENNOSIDES A AND B
  8. PLAVIX [Concomitant]
     Active Substance: CLOPIDOGREL BISULFATE
  9. LOXOPROFEN SODIUM [Concomitant]
     Active Substance: LOXOPROFEN SODIUM
  10. CEFON [Concomitant]
     Active Substance: CEFOPERAZONE SODIUM\SULBACTAM SODIUM
     Indication: SPONDYLITIS
     Dosage: 1 G, 2X/DAY
     Dates: start: 20151102, end: 20151108
  11. LANSOPRAZOLE. [Concomitant]
     Active Substance: LANSOPRAZOLE
     Route: 048

REACTIONS (1)
  - Hyponatraemia [Recovered/Resolved]

NARRATIVE: CASE EVENT DATE: 201511
